FAERS Safety Report 4275310-1 (Version None)
Quarter: 2004Q1

REPORT INFORMATION
  Report Type: 
  Country: None (occurrence: None)
  Receive Date: 20040116
  Receipt Date: 20031110
  Transmission Date: 20041129
  Serious: Yes (Hospitalization)
  Sender: FDA-Public Use
  Company Number: KII-2003-0006846

PATIENT
  Age: 53 Year
  Sex: Male

DRUGS (9)
  1. OXYCODONE HCL [Suspect]
     Indication: DRUG USE FOR UNKNOWN INDICATION
     Dosage: ORAL
     Route: 048
  2. MORPHINE SULFATE [Suspect]
     Indication: DRUG USE FOR UNKNOWN INDICATION
     Dosage: ORAL
     Route: 048
  3. BACLOFEN [Suspect]
     Indication: DRUG USE FOR UNKNOWN INDICATION
     Dosage: ORAL
     Route: 048
  4. NEURONTIN [Suspect]
     Indication: DRUG USE FOR UNKNOWN INDICATION
  5. PAXIL [Suspect]
     Indication: DRUG USE FOR UNKNOWN INDICATION
  6. VITAMIN A [Suspect]
     Indication: DRUG USE FOR UNKNOWN INDICATION
  7. VITAMIN C (ASCORBIC ACID) [Concomitant]
     Indication: DRUG USE FOR UNKNOWN INDICATION
  8. ZINC (ZINC) [Suspect]
     Indication: DRUG USE FOR UNKNOWN INDICATION
  9. HYDROCHLOROTHIAZIDE [Suspect]
     Indication: DRUG USE FOR UNKNOWN INDICATION

REACTIONS (9)
  - CONFUSIONAL STATE [None]
  - DRUG WITHDRAWAL SYNDROME [None]
  - FLUSHING [None]
  - HYPERHIDROSIS [None]
  - HYPERTENSION [None]
  - MENTAL STATUS CHANGES [None]
  - OVERDOSE [None]
  - SOMNOLENCE [None]
  - TACHYCARDIA [None]
